FAERS Safety Report 6967548-7 (Version None)
Quarter: 2010Q3

REPORT INFORMATION
  Report Type: 
  Country: None (occurrence: None)
  Receive Date: 20100907
  Receipt Date: 20100903
  Transmission Date: 20110219
  Serious: Yes (Hospitalization, Congenital Anomaly)
  Sender: FDA-Public Use
  Company Number: GB-BRISTOL-MYERS SQUIBB COMPANY-15271273

PATIENT
  Age: 3 Month
  Sex: Male
  Weight: 3 kg

DRUGS (7)
  1. ARIPIPRAZOLE [Suspect]
     Route: 064
  2. DIHYDROCODEINE BITARTRATE INJ [Suspect]
     Route: 064
  3. LAMICTAL [Suspect]
     Dosage: TABS
     Route: 064
     Dates: start: 20090902
  4. LANSOPRAZOLE [Suspect]
     Route: 064
  5. PROPRANOLOL [Suspect]
     Route: 064
  6. SERTRALINE HYDROCHLORIDE [Suspect]
     Route: 064
  7. NORETHISTERONE [Suspect]

REACTIONS (4)
  - ATRIAL SEPTAL DEFECT [None]
  - MATERNAL DRUGS AFFECTING FOETUS [None]
  - PREMATURE BABY [None]
  - VENTRICULAR SEPTAL DEFECT [None]
